FAERS Safety Report 6184577-4 (Version None)
Quarter: 2009Q2

REPORT INFORMATION
  Report Type: 
  Country: None (occurrence: None)
  Receive Date: 20090508
  Receipt Date: 20090427
  Transmission Date: 20091009
  Serious: Yes (Other)
  Sender: FDA-Public Use
  Company Number: US-MERCK-0901USA03856

PATIENT
  Age: 56 Year
  Sex: Female

DRUGS (2)
  1. FOSAMAX [Suspect]
     Indication: OSTEOPOROSIS PROPHYLAXIS
     Route: 048
     Dates: start: 19970101, end: 20000101
  2. HORMONES (UNSPECIFIED) [Concomitant]
     Route: 065
     Dates: start: 19970101

REACTIONS (13)
  - ABDOMINAL DISCOMFORT [None]
  - DENTAL CARIES [None]
  - DERMATITIS CONTACT [None]
  - DIARRHOEA [None]
  - FAILURE OF IMPLANT [None]
  - HEAD INJURY [None]
  - LOOSE TOOTH [None]
  - MOUTH ULCERATION [None]
  - NAUSEA [None]
  - ORAL INFECTION [None]
  - STOMATITIS [None]
  - TOOTH DISORDER [None]
  - TOOTH FRACTURE [None]
